FAERS Safety Report 20626418 (Version 1)
Quarter: 2022Q1

REPORT INFORMATION
  Report Type: Spontaneous
  Country: FR (occurrence: None)
  Receive Date: 20220323
  Receipt Date: 20220323
  Transmission Date: 20220423
  Serious: Yes (Other)
  Sender: FDA-Public Use
  Company Number: FR-Orion Corporation ORION PHARMA-TREX2022-0051

PATIENT
  Age: 80 Year
  Sex: Female

DRUGS (14)
  1. METHOTREXATE SODIUM [Suspect]
     Active Substance: METHOTREXATE SODIUM
     Indication: Psoriatic arthropathy
     Dosage: STRENGTH: 2.5 MG
     Route: 048
     Dates: start: 202201, end: 202202
  2. METHOTREXATE SODIUM [Suspect]
     Active Substance: METHOTREXATE SODIUM
     Dosage: STRENGTH: 10 MG
     Route: 048
     Dates: start: 202201, end: 202202
  3. METFORMIN PAMOATE [Concomitant]
     Active Substance: METFORMIN PAMOATE
     Route: 065
  4. TRULICITY [Concomitant]
     Active Substance: DULAGLUTIDE
     Dosage: 1.5 MG SOLUTION IN PRE-FILLED PEN 4
     Route: 065
  5. UMULINE PROFILE NPH 30 KWIKPEN [Concomitant]
     Dosage: 100UI/ML5
     Route: 065
  6. NOVATREX (METHOTREXATE) [Concomitant]
     Active Substance: METHOTREXATE SODIUM
     Dosage: TABLET 12
     Route: 065
  7. FOLIC ACID 5MG CCD CPR 90 [Concomitant]
     Route: 065
  8. PREDNISONE [Concomitant]
     Active Substance: PREDNISONE
     Dosage: 5 MG SCORED TABLET 30
     Route: 065
  9. LANSOPRAZOLE ARROW CRP ORO 28 [Concomitant]
     Dosage: STRENGTH: 15 MG
     Route: 065
  10. BROMAZEPAM [Concomitant]
     Active Substance: BROMAZEPAM
     Dosage: QUADRI30
     Route: 065
  11. POLYETHYLENE GLYCOL 4000 [Concomitant]
     Active Substance: POLYETHYLENE GLYCOL 4000
     Route: 065
  12. ZYMAD AMP [Concomitant]
     Dosage: 50000 UI AMP BUV 2 ML 1
     Route: 065
  13. VITABACT [Concomitant]
     Active Substance: PICLOXYDINE DIHYDROCHLORIDE
     Dosage: 0.05% COL 10 ML
     Route: 065
  14. DOLIPRANE [Concomitant]
     Active Substance: ACETAMINOPHEN
     Dosage: 8 TABLET
     Route: 065

REACTIONS (3)
  - Accidental overdose [Recovered/Resolved]
  - Abdominal pain [Unknown]
  - Diverticulum [Unknown]

NARRATIVE: CASE EVENT DATE: 20220101
